FAERS Safety Report 6398951-4 (Version None)
Quarter: 2009Q4

REPORT INFORMATION
  Report Type: 
  Country: None (occurrence: None)
  Receive Date: 20091013
  Receipt Date: 20090928
  Transmission Date: 20100525
  Serious: Yes (Other)
  Sender: FDA-Public Use
  Company Number: CH-GENENTECH-291714

PATIENT
  Age: 37 Year
  Sex: Female

DRUGS (6)
  1. HERCEPTIN [Suspect]
     Indication: BREAST CANCER METASTATIC
     Route: 065
  2. PACLITAXEL [Suspect]
     Indication: BREAST CANCER METASTATIC
  3. CARBOPLATIN [Suspect]
     Indication: BREAST CANCER METASTATIC
  4. CAPECITABINE [Suspect]
     Indication: METASTASIS
     Dosage: 1500 MG, QD
  5. LAPATINIB [Suspect]
     Indication: METASTASIS
     Dosage: UNK
  6. LAPATINIB [Suspect]
     Dosage: 1500 MG, QD

REACTIONS (3)
  - BLINDNESS [None]
  - GASTROINTESTINAL TOXICITY [None]
  - METASTASES TO EYE [None]
